FAERS Safety Report 15245934 (Version 20)
Quarter: 2022Q1

REPORT INFORMATION
  Report Type: Report from Study
  Country: CA (occurrence: CA)
  Receive Date: 20180806
  Receipt Date: 20220315
  Transmission Date: 20220424
  Serious: Yes (Hospitalization, Other)
  Sender: FDA-Public Use
  Company Number: PHHY2018CA002570

PATIENT
  Age: 53 Year
  Sex: Female

DRUGS (11)
  1. SANDOSTATIN LAR DEPOT [Suspect]
     Active Substance: OCTREOTIDE ACETATE
     Indication: Carcinoid tumour
     Dosage: 30 MG, Q4W
     Route: 030
     Dates: start: 20170815
  2. SANDOSTATIN LAR DEPOT [Suspect]
     Active Substance: OCTREOTIDE ACETATE
  3. SANDOSTATIN LAR DEPOT [Suspect]
     Active Substance: OCTREOTIDE ACETATE
  4. OCTREOTIDE [Suspect]
     Active Substance: OCTREOTIDE
     Indication: Carcinoid tumour
     Dosage: BID UNTIL FIRST LAR
     Route: 058
     Dates: start: 20170721
  5. OCTREOTIDE [Suspect]
     Active Substance: OCTREOTIDE
  6. OCTREOTIDE [Suspect]
     Active Substance: OCTREOTIDE
  7. FENTANYL [Suspect]
     Active Substance: FENTANYL
     Indication: Back pain
     Dosage: UNK
     Route: 062
     Dates: start: 201701
  8. FENTANYL [Suspect]
     Active Substance: FENTANYL
     Dosage: UNK
     Route: 062
  9. PREGABALIN [Concomitant]
     Active Substance: PREGABALIN
     Indication: Product used for unknown indication
     Dosage: 300 MG
     Route: 065
  10. PREGABALIN [Concomitant]
     Active Substance: PREGABALIN
     Dosage: 50 MG
     Route: 065
  11. SEMAGLUTIDE [Concomitant]
     Active Substance: SEMAGLUTIDE
     Indication: Product used for unknown indication
     Dosage: UNK (BRAND NAME: OZEMPIC)
     Route: 065

REACTIONS (32)
  - Hepatic enzyme increased [Unknown]
  - Coma [Unknown]
  - Nephrolithiasis [Unknown]
  - Renal pain [Unknown]
  - Blood pressure increased [Unknown]
  - Blood pressure systolic increased [Unknown]
  - Diabetes mellitus [Unknown]
  - Diarrhoea [Unknown]
  - Breast mass [Unknown]
  - Blood glucose abnormal [Unknown]
  - Hypercholesterolaemia [Unknown]
  - Hepatic pain [Unknown]
  - Hypertension [Unknown]
  - Discoloured vomit [Unknown]
  - Urinary tract infection [Unknown]
  - Illness [Unknown]
  - Pain in extremity [Unknown]
  - Palpitations [Unknown]
  - Sinusitis [Unknown]
  - Fall [Unknown]
  - Head injury [Unknown]
  - White blood cell count increased [Unknown]
  - Headache [Unknown]
  - Abdominal pain upper [Unknown]
  - Abdominal pain [Unknown]
  - Nausea [Unknown]
  - Dizziness [Unknown]
  - Dyspnoea [Unknown]
  - Abdominal distension [Unknown]
  - Decreased appetite [Unknown]
  - Fatigue [Unknown]
  - Injection site pain [Unknown]

NARRATIVE: CASE EVENT DATE: 20180105
